FAERS Safety Report 10765301 (Version 1)
Quarter: 2015Q1

REPORT INFORMATION
  Report Type: Spontaneous
  Country: GB (occurrence: GB)
  Receive Date: 20150205
  Receipt Date: 20150205
  Transmission Date: 20150721
  Serious: Yes (Life-Threatening)
  Sender: FDA-Public Use
  Company Number: GB-ABBVIE-15K-167-1341788-00

PATIENT
  Age: 46 Year
  Sex: Female

DRUGS (1)
  1. HUMIRA [Suspect]
     Active Substance: ADALIMUMAB
     Indication: ANKYLOSING SPONDYLITIS
     Dosage: ALTERNATE WEEKS
     Route: 058
     Dates: start: 200810, end: 20141219

REACTIONS (2)
  - Malignant melanoma [Not Recovered/Not Resolved]
  - Naevus haemorrhage [Not Recovered/Not Resolved]

NARRATIVE: CASE EVENT DATE: 201412
